FAERS Safety Report 17244332 (Version 2)
Quarter: 2020Q2

REPORT INFORMATION
  Report Type: Spontaneous
  Country: US (occurrence: US)
  Receive Date: 20200107
  Receipt Date: 20200427
  Transmission Date: 20200713
  Serious: Yes (Other)
  Sender: FDA-Public Use
  Company Number: US-GILEAD-2019-0444850

PATIENT
  Sex: Male
  Weight: 86.17 kg

DRUGS (26)
  1. GENVOYA [Concomitant]
     Active Substance: COBICISTAT\ELVITEGRAVIR\EMTRICITABINE\TENOFOVIR ALAFENAMIDE FUMARATE
  2. VIDEX EC [Concomitant]
     Active Substance: DIDANOSINE
  3. VIRACEPT [Concomitant]
     Active Substance: NELFINAVIR MESYLATE
  4. ZIAGEN [Concomitant]
     Active Substance: ABACAVIR SULFATE
  5. ZERIT [Concomitant]
     Active Substance: STAVUDINE
  6. ASPIRIN 81 [Concomitant]
     Active Substance: ASPIRIN
  7. BIKTARVY [Concomitant]
     Active Substance: BICTEGRAVIR SODIUM\EMTRICITABINE\TENOFOVIR ALAFENAMIDE FUMARATE
  8. SUSTIVA [Concomitant]
     Active Substance: EFAVIRENZ
  9. TRIZIVIR [Concomitant]
     Active Substance: ABACAVIR SULFATE\LAMIVUDINE\ZIDOVUDINE
  10. VIDEX [Concomitant]
     Active Substance: DIDANOSINE
  11. GEMFIBROZIL. [Concomitant]
     Active Substance: GEMFIBROZIL
  12. CRIXIVAN [Concomitant]
     Active Substance: INDINAVIR SULFATE
  13. ISENTRESS [Concomitant]
     Active Substance: RALTEGRAVIR POTASSIUM
  14. KALETRA [Concomitant]
     Active Substance: LOPINAVIR\RITONAVIR
  15. NORVIR [Concomitant]
     Active Substance: RITONAVIR
  16. CLOPIDOGREL [Concomitant]
     Active Substance: CLOPIDOGREL BISULFATE
  17. ROSUVASTATIN. [Concomitant]
     Active Substance: ROSUVASTATIN
  18. TRUVADA [Suspect]
     Active Substance: EMTRICITABINE\TENOFOVIR DISOPROXIL FUMARATE
     Indication: HIV INFECTION
     Dosage: UNK
     Route: 048
     Dates: start: 201002, end: 201204
  19. VIREAD [Suspect]
     Active Substance: TENOFOVIR DISOPROXIL FUMARATE
     Indication: HIV INFECTION
     Dosage: UNK
     Route: 048
     Dates: start: 20030201, end: 200403
  20. EPIVIR [Concomitant]
     Active Substance: LAMIVUDINE
  21. FUZEON [Concomitant]
     Active Substance: ENFUVIRTIDE
  22. LOSARTAN. [Concomitant]
     Active Substance: LOSARTAN
  23. STRIBILD [Suspect]
     Active Substance: COBICISTAT\ELVITEGRAVIR\EMTRICITABINE\TENOFOVIR DISOPROXIL FUMARATE
     Indication: HIV INFECTION
     Dosage: UNK
     Route: 048
     Dates: start: 201302, end: 201604
  24. RETROVIR [Concomitant]
     Active Substance: ZIDOVUDINE
  25. CARVEDILOL. [Concomitant]
     Active Substance: CARVEDILOL
  26. CLARITIN-D NOS [Concomitant]
     Active Substance: LORATADINE\PSEUDOEPHEDRINE SULFATE

REACTIONS (7)
  - Pain [Not Recovered/Not Resolved]
  - Emotional distress [Not Recovered/Not Resolved]
  - Depression [Not Recovered/Not Resolved]
  - Chronic kidney disease [Not Recovered/Not Resolved]
  - Economic problem [Not Recovered/Not Resolved]
  - Anhedonia [Not Recovered/Not Resolved]
  - Anxiety [Not Recovered/Not Resolved]

NARRATIVE: CASE EVENT DATE: 2008
